FAERS Safety Report 4674148-0 (Version None)
Quarter: 2005Q2

REPORT INFORMATION
  Report Type: 
  Country: None (occurrence: None)
  Receive Date: 20050524
  Receipt Date: 20050524
  Transmission Date: 20051028
  Serious: Yes (Hospitalization)
  Sender: FDA-Public Use
  Company Number: None

PATIENT
  Age: 73 Year
  Sex: Female

DRUGS (9)
  1. CLINDAMYCIN [Suspect]
     Indication: PNEUMONIA
  2. LEVOFLOXACIN [Suspect]
  3. PROPRANOLOL [Concomitant]
  4. PLAVIX [Concomitant]
  5. SYNTHROID [Concomitant]
  6. MEVACOR [Concomitant]
  7. AMITRIPTYLINE [Concomitant]
  8. CLONAZEPAM [Concomitant]
  9. REGLAN [Concomitant]

REACTIONS (3)
  - COLITIS [None]
  - DEHYDRATION [None]
  - DIARRHOEA [None]
